FAERS Safety Report 8890691 (Version 1)
Quarter: 2012Q4

REPORT INFORMATION
  Report Type: Report from Study
  Country: JP (occurrence: JP)
  Receive Date: 20121107
  Receipt Date: 20121107
  Transmission Date: 20130627
  Serious: Yes (Hospitalization)
  Sender: FDA-Public Use
  Company Number: JP-VERTEX PHARMACEUTICAL INC.-AE-2012-008842

PATIENT
  Age: 57 Year
  Sex: Male

DRUGS (12)
  1. TELAPREVIR [Suspect]
     Indication: CHRONIC HEPATITIS C
     Dosage: 1500 mg, qd
     Route: 048
     Dates: start: 20120606, end: 20120607
  2. REBETOL [Suspect]
     Indication: CHRONIC HEPATITIS C
     Dosage: 400 mg, qd
     Route: 048
     Dates: start: 20120606, end: 20120608
  3. REBETOL [Suspect]
     Dosage: 400 mg, qd
     Route: 048
     Dates: start: 20120613, end: 20120621
  4. REBETOL [Suspect]
     Dosage: 400 mg, qd
     Route: 048
     Dates: start: 20120727, end: 20120803
  5. REBETOL [Suspect]
     Dosage: 400 mg, qd
     Route: 048
     Dates: start: 20120817, end: 20120824
  6. PEGINTERFERON ALFA-2B [Suspect]
     Indication: CHRONIC HEPATITIS C
     Dosage: 0.82 ?g/kg, qw
     Route: 058
     Dates: start: 20120606, end: 20120621
  7. PEGINTERFERON ALFA-2B [Suspect]
     Dosage: 0.82 ?g/kg, qw
     Route: 058
     Dates: start: 20120727, end: 20120803
  8. PEGINTERFERON ALFA-2B [Suspect]
     Dosage: 0.82 ?g/kg, qw
     Route: 058
     Dates: start: 20120817, end: 20120824
  9. NAUZELIN [Concomitant]
     Dosage: UNK, prn
     Route: 048
  10. LYRICA [Concomitant]
     Dosage: 2 DF, qd
     Route: 048
  11. TAKEPRON [Concomitant]
     Dosage: 1 DF, qd
     Route: 048
  12. ROHYPNOL [Concomitant]
     Route: 048

REACTIONS (2)
  - Rash [Recovered/Resolved]
  - Platelet count decreased [None]
